FAERS Safety Report 5373961-4 (Version None)
Quarter: 2007Q2

REPORT INFORMATION
  Report Type: 
  Country: None (occurrence: None)
  Receive Date: 20070627
  Receipt Date: 20070614
  Transmission Date: 20071010
  Serious: Yes (Other)
  Sender: FDA-Public Use
  Company Number: VNL_00615_2007

PATIENT
  Sex: Female
  Weight: 61.2356 kg

DRUGS (13)
  1. APOKYN [Suspect]
     Indication: PARKINSON'S DISEASE
     Dosage: 0.2 ML 1X SUBCUTANEOUS
     Route: 058
     Dates: start: 20070608, end: 20070608
  2. APOKYN [Suspect]
     Indication: PARKINSON'S DISEASE
     Dosage: 0.4 ML QD  SUBCUTANEOUS
     Route: 058
     Dates: start: 20070608, end: 20070609
  3. APOKYN [Suspect]
     Indication: PARKINSON'S DISEASE
     Dosage: 0.3 ML 1X SUBCUTANEOUS
     Route: 058
     Dates: start: 20070610, end: 20070610
  4. APOKYN [Suspect]
     Dosage: 0.2 ML 1X SUBCUTANEOUS
     Route: 058
     Dates: start: 20070611, end: 20070611
  5. APOKYN [Suspect]
     Indication: PARKINSON'S DISEASE
     Dosage: 0.3 ML 1X SUBCUTANEOUS
     Route: 058
     Dates: start: 20070612, end: 20070612
  6. APOKYN [Suspect]
     Indication: PARKINSON'S DISEASE
     Dosage: 0.2 ML 1X SUBCUTANEOUS
     Route: 058
     Dates: start: 20070613, end: 20070613
  7. EFFEXOR [Concomitant]
  8. CARBIDOPA AND LEVODOPA [Concomitant]
  9. GABAPENTIN [Concomitant]
  10. MIRAPEX [Concomitant]
  11. DICLOFENAC [Concomitant]
  12. VITAMIN B12 NOS [Concomitant]
  13. VITAMIN D [Concomitant]

REACTIONS (4)
  - HALLUCINATION, VISUAL [None]
  - NO THERAPEUTIC RESPONSE [None]
  - PARANOIA [None]
  - SOMNOLENCE [None]
